FAERS Safety Report 10476799 (Version 2)
Quarter: 2015Q3

REPORT INFORMATION
  Report Type: Report from Study
  Country: GB (occurrence: GB)
  Receive Date: 20140925
  Receipt Date: 20150923
  Transmission Date: 20151125
  Serious: Yes (Hospitalization)
  Sender: FDA-Public Use
  Company Number: GB-ROCHE-1466675

PATIENT
  Age: 66 Year
  Sex: Female
  Weight: 65.8 kg

DRUGS (1)
  1. BEVACIZUMAB [Suspect]
     Active Substance: BEVACIZUMAB
     Indication: COLORECTAL CANCER METASTATIC
     Dosage: LAST DOSE PRIOR TO SAE 03/JUN/2014
     Route: 042
     Dates: start: 20140128

REACTIONS (1)
  - Ascites [Recovered/Resolved with Sequelae]

NARRATIVE: CASE EVENT DATE: 20140816
